FAERS Safety Report 14438551 (Version 3)
Quarter: 2018Q1

REPORT INFORMATION
  Report Type: Spontaneous
  Country: GR (occurrence: GR)
  Receive Date: 20180125
  Receipt Date: 20180314
  Transmission Date: 20180509
  Serious: Yes (Hospitalization, Other)
  Sender: FDA-Public Use
  Company Number: GR-IPSEN BIOPHARMACEUTICALS, INC.-2018-01309

PATIENT
  Sex: Female
  Weight: 130 kg

DRUGS (13)
  1. 5-FU [Suspect]
     Active Substance: FLUOROURACIL
     Dosage: 1800 MG/M2
     Route: 042
  2. IRINOTECAN LIPOSOME [Suspect]
     Active Substance: IRINOTECAN
     Indication: OFF LABEL USE
     Dosage: LESS THAN 150 MG/M2
     Route: 042
  3. FOLINIC ACID [Suspect]
     Active Substance: LEUCOVORIN
     Dosage: LESS THAN 400 MG/M2
  4. ERBITUX [Suspect]
     Active Substance: CETUXIMAB
     Route: 042
     Dates: start: 20160818, end: 20160922
  5. 5-FU [Suspect]
     Active Substance: FLUOROURACIL
     Indication: COLORECTAL CANCER METASTATIC
     Dosage: 400 MG/M2
     Route: 040
  6. 5-FU [Suspect]
     Active Substance: FLUOROURACIL
     Dosage: LESS THAN 400 MG/M2
     Route: 042
  7. 5-FU [Suspect]
     Active Substance: FLUOROURACIL
     Route: 042
  8. FOLINIC ACID [Suspect]
     Active Substance: LEUCOVORIN
     Indication: COLORECTAL CANCER METASTATIC
     Dosage: 400 MG/M2
  9. IRINOTECAN LIPOSOME [Suspect]
     Active Substance: IRINOTECAN
     Indication: COLORECTAL CANCER METASTATIC
     Dosage: 150 MG/M2
     Route: 042
  10. IRINOTECAN LIPOSOME [Suspect]
     Active Substance: IRINOTECAN
     Dosage: NOT REPORTED
     Route: 042
  11. 5-FU [Suspect]
     Active Substance: FLUOROURACIL
     Route: 040
  12. ERBITUX [Suspect]
     Active Substance: CETUXIMAB
     Indication: COLORECTAL CANCER METASTATIC
     Dosage: 400 MG/M2
     Route: 042
     Dates: start: 20160818, end: 20160818
  13. ERBITUX [Suspect]
     Active Substance: CETUXIMAB
     Route: 042
     Dates: start: 20160928

REACTIONS (8)
  - Off label use [Unknown]
  - Conjunctivitis [Recovered/Resolved with Sequelae]
  - Platelet count decreased [Recovered/Resolved with Sequelae]
  - Overdose [Unknown]
  - Stomatitis [Not Recovered/Not Resolved]
  - Anaemia [Not Recovered/Not Resolved]
  - Cheilitis [Not Recovered/Not Resolved]
  - Neutropenia [Recovered/Resolved]

NARRATIVE: CASE EVENT DATE: 20160922
